FAERS Safety Report 6137074-6 (Version None)
Quarter: 2009Q1

REPORT INFORMATION
  Report Type: 
  Country: None (occurrence: None)
  Receive Date: 20090326
  Receipt Date: 20090316
  Transmission Date: 20090719
  Serious: Yes (Other)
  Sender: FDA-Public Use
  Company Number: 236470J08USA

PATIENT
  Age: 39 Year
  Sex: Male

DRUGS (5)
  1. REBIF [Suspect]
     Indication: MULTIPLE SCLEROSIS
     Dosage: 44 MCG, 3 IN 1 WEEKS, SUBCUTANEOUS
     Route: 058
     Dates: start: 20080215
  2. EFFEXOR (VENLAFACINE) [Concomitant]
  3. FLONASE [Concomitant]
  4. ALLEGRA [Concomitant]
  5. HYDROCORTISONE (HYDROCORTISONE/00028601/) [Concomitant]

REACTIONS (3)
  - BASAL CELL CARCINOMA [None]
  - INJECTION SITE REACTION [None]
  - PRECANCEROUS SKIN LESION [None]
